FAERS Safety Report 10213454 (Version 1)
Quarter: 2014Q2

REPORT INFORMATION
  Report Type: Spontaneous
  Country: ES (occurrence: None)
  Receive Date: 20140529
  Receipt Date: 20140529
  Transmission Date: 20141212
  Serious: Yes (Hospitalization)
  Sender: FDA-Public Use
  Company Number: SYM-2014-21261

PATIENT
  Age: 85 Year
  Sex: Female

DRUGS (7)
  1. METRONIDAZOLE [Suspect]
     Indication: DIARRHOEA
     Route: 048
  2. CIPROFLOXACIN (CIPROFLOXACIN) [Suspect]
     Indication: DIARRHOEA
  3. PREDNISONE (PREDNISONE) [Concomitant]
  4. RISEDRONIC ACID [Concomitant]
  5. ERGOCALCIFEROL (ERGOCALCIFEROL) [Concomitant]
  6. CALCIUM (CALCIUM) [Concomitant]
  7. LOPERAMIDE [Concomitant]

REACTIONS (4)
  - Pseudomembranous colitis [None]
  - No therapeutic response [None]
  - Malaise [None]
  - Leukocytosis [None]
